FAERS Safety Report 9337373 (Version 1)
Quarter: 2013Q2

REPORT INFORMATION
  Report Type: Spontaneous
  Country: FR (occurrence: FR)
  Receive Date: 20130607
  Receipt Date: 20130607
  Transmission Date: 20140414
  Serious: Yes (Life-Threatening)
  Sender: FDA-Public Use
  Company Number: FR-GLAXOSMITHKLINE-B0897734A

PATIENT
  Age: 60 Year
  Sex: Female

DRUGS (9)
  1. ALKERAN [Suspect]
     Indication: PLASMA CELL MYELOMA
     Route: 042
     Dates: start: 2000, end: 2000
  2. VELCADE [Suspect]
     Indication: PLASMA CELL MYELOMA
     Route: 042
     Dates: start: 20080408, end: 200809
  3. VEPESIDE [Suspect]
     Indication: PLASMA CELL MYELOMA
     Route: 042
     Dates: start: 2000, end: 2000
  4. DOXORUBICINE [Suspect]
     Indication: PLASMA CELL MYELOMA
     Route: 042
  5. BICNU [Suspect]
     Indication: PLASMA CELL MYELOMA
     Route: 042
     Dates: start: 2000, end: 2000
  6. VINCRISTINE [Suspect]
     Indication: PLASMA CELL MYELOMA
     Route: 042
     Dates: start: 2000, end: 2000
  7. ENDOXAN [Suspect]
     Indication: PLASMA CELL MYELOMA
     Route: 042
     Dates: start: 2000, end: 2000
  8. DEXAMETHASONE [Suspect]
     Indication: PLASMA CELL MYELOMA
     Route: 042
     Dates: start: 2004, end: 2008
  9. PREDNISONE [Suspect]
     Indication: PLASMA CELL MYELOMA
     Route: 042
     Dates: start: 2000, end: 2000

REACTIONS (2)
  - Myelodysplastic syndrome [Not Recovered/Not Resolved]
  - Acute myeloid leukaemia [Not Recovered/Not Resolved]
